FAERS Safety Report 9163207 (Version 1)
Quarter: 2013Q1

REPORT INFORMATION
  Report Type: Spontaneous
  Country: US (occurrence: US)
  Receive Date: 20130314
  Receipt Date: 20130314
  Transmission Date: 20140127
  Serious: Yes (Other)
  Sender: FDA-Public Use
  Company Number: US-GLAXOSMITHKLINE-A1015146A

PATIENT
  Age: 81 Year
  Sex: Female

DRUGS (7)
  1. ADVAIR [Suspect]
     Indication: CHRONIC OBSTRUCTIVE PULMONARY DISEASE
     Dosage: 1PUFF TWICE PER DAY
     Route: 055
     Dates: start: 2008
  2. NEXIUM [Concomitant]
  3. PROAIR HFA [Concomitant]
  4. METFORMIN [Concomitant]
  5. ENALAPRIL [Concomitant]
  6. HYDROCHLOROTHIAZIDE [Concomitant]
  7. ASPIRIN [Concomitant]

REACTIONS (3)
  - Plasma cell myeloma [Not Recovered/Not Resolved]
  - Osteoporosis [Unknown]
  - Osteoporosis [Unknown]
